FAERS Safety Report 23282566 (Version 1)
Quarter: 2023Q4

REPORT INFORMATION
  Report Type: Spontaneous
  Country: US (occurrence: US)
  Receive Date: 20231211
  Receipt Date: 20231211
  Transmission Date: 20240109
  Serious: No
  Sender: FDA-Public Use
  Company Number: US-ELI_LILLY_AND_COMPANY-US202312005200

PATIENT
  Sex: Female
  Weight: 77.098 kg

DRUGS (1)
  1. FORTEO [Suspect]
     Active Substance: TERIPARATIDE
     Indication: Osteoporosis
     Dosage: 250 UG, UNKNOWN
     Route: 058
     Dates: start: 202309

REACTIONS (2)
  - Weight decreased [Unknown]
  - Nausea [Unknown]
